FAERS Safety Report 6244058-6 (Version None)
Quarter: 2009Q2

REPORT INFORMATION
  Report Type: 
  Country: None (occurrence: None)
  Receive Date: 20090619
  Receipt Date: 20090327
  Transmission Date: 20091009
  Serious: Yes (Other)
  Sender: FDA-Public Use
  Company Number: WWISSUE-279

PATIENT
  Sex: Female

DRUGS (2)
  1. LITHIUM CARBONATE [Suspect]
     Dates: start: 20080301, end: 20090301
  2. RISPERDAL [Concomitant]

REACTIONS (5)
  - DIARRHOEA [None]
  - MOOD ALTERED [None]
  - PAIN [None]
  - RASH [None]
  - TREMOR [None]
